FAERS Safety Report 20105219 (Version 1)
Quarter: 2021Q4

REPORT INFORMATION
  Report Type: Spontaneous
  Country: ZA (occurrence: ZA)
  Receive Date: 20211124
  Receipt Date: 20211124
  Transmission Date: 20220303
  Serious: Yes (Disabling)
  Sender: FDA-Public Use
  Company Number: ZA-ABBVIE-21K-143-4173319-00

PATIENT
  Sex: Male

DRUGS (2)
  1. EPILIM [Suspect]
     Active Substance: VALPROATE SODIUM
     Indication: Product used for unknown indication
     Route: 065
  2. LAMOTRIGINE [Suspect]
     Active Substance: LAMOTRIGINE
     Indication: Product used for unknown indication
     Route: 065

REACTIONS (3)
  - General physical health deterioration [Unknown]
  - Disability [Unknown]
  - Product prescribing error [Unknown]

NARRATIVE: CASE EVENT DATE: 20090101
